FAERS Safety Report 4322227-X (Version None)
Quarter: 2004Q1

REPORT INFORMATION
  Report Type: 
  Country: None (occurrence: None)
  Receive Date: 20040319
  Receipt Date: 20040315
  Transmission Date: 20041129
  Serious: Yes (Disabling, Other)
  Sender: FDA-Public Use
  Company Number: OMPQ-PR-0403L-0193 (0)

PATIENT
  Age: 45 Year
  Sex: Female

DRUGS (1)
  1. OMNIPAQUE 70 [Suspect]
     Indication: INTRACRANIAL ANEURYSM
     Dosage: SINGLE DOSE, I.A.
     Route: 013

REACTIONS (6)
  - BLINDNESS CORTICAL [None]
  - CONFUSIONAL STATE [None]
  - DISORIENTATION [None]
  - HEMIANOPIA [None]
  - NUCLEAR MAGNETIC RESONANCE IMAGING BRAIN ABNORMAL [None]
  - VISUAL FIELD DEFECT [None]
